FAERS Safety Report 20596697 (Version 2)
Quarter: 2022Q3

REPORT INFORMATION
  Report Type: Spontaneous
  Country: JP (occurrence: JP)
  Receive Date: 20220315
  Receipt Date: 20220801
  Transmission Date: 20221027
  Serious: Yes (Hospitalization, Other)
  Sender: FDA-Public Use
  Company Number: JP-ONO-2022JP007063

PATIENT
  Age: 8 Decade
  Sex: Male

DRUGS (1)
  1. OPDIVO [Suspect]
     Active Substance: NIVOLUMAB
     Indication: Gastric cancer
     Dosage: 480 MG
     Route: 041
     Dates: end: 202112

REACTIONS (5)
  - Aspiration [Recovering/Resolving]
  - Adrenal insufficiency [Recovering/Resolving]
  - Blood corticotrophin abnormal [Not Recovered/Not Resolved]
  - Decreased appetite [Recovering/Resolving]
  - General physical health deterioration [Unknown]

NARRATIVE: CASE EVENT DATE: 20210101
